FAERS Safety Report 17755924 (Version 1)
Quarter: 2020Q2

REPORT INFORMATION
  Report Type: Spontaneous
  Country: CN (occurrence: CN)
  Receive Date: 20200507
  Receipt Date: 20200507
  Transmission Date: 20200714
  Serious: Yes (Other)
  Sender: FDA-Public Use
  Company Number: CN-BAXTER-2020BAX009554

PATIENT
  Age: 52 Year
  Sex: Female
  Weight: 51 kg

DRUGS (5)
  1. ENDOXAN [Suspect]
     Active Substance: CYCLOPHOSPHAMIDE
     Indication: BREAST CANCER FEMALE
     Dosage: FIRST CHEMOTHERAPY, CYCLOPHOSPHAMIDE + SODIUM CHLORIDE (NS) 45 ML
     Route: 042
     Dates: start: 20200319, end: 20200319
  2. 0.9% SODIUM CHLORIDE INJECTION [Suspect]
     Active Substance: SODIUM CHLORIDE
     Indication: MEDICATION DILUTION
     Dosage: FIRST CHEMOTHERAPY, CYCLOPHOSPHAMIDE 830 MG + SODIUM CHLORIDE (NS)
     Route: 042
     Dates: start: 20200319, end: 20200319
  3. PEGYLATED RECOMBINANT HUMAN GRANULOCYTE COLONY STIMULATING FACTOR [Concomitant]
     Indication: PROPHYLAXIS
     Dosage: RHG -CSF
     Route: 058
     Dates: start: 20200320
  4. PHARMORUBICIN [Suspect]
     Active Substance: EPIRUBICIN
     Indication: BREAST CANCER FEMALE
     Dosage: FIRST CHEMOTHERAPY, EPIRUBICIN HYDROCHLORIDE + SODIUM CHLORIDE (NS) 100 ML
     Route: 041
     Dates: start: 20200319, end: 20200319
  5. 0.9% SODIUM CHLORIDE INJECTION [Suspect]
     Active Substance: SODIUM CHLORIDE
     Dosage: FIRST CHEMOTHERAPY, EPIRUBICIN HYDROCHLORIDE 125 MG + SODIUM CHLORIDE (NS)
     Route: 041
     Dates: start: 20200319, end: 20200319

REACTIONS (2)
  - White blood cell count decreased [Recovered/Resolved]
  - Agranulocytosis [Recovered/Resolved]

NARRATIVE: CASE EVENT DATE: 20200326
